FAERS Safety Report 19469256 (Version 7)
Quarter: 2024Q2

REPORT INFORMATION
  Report Type: Spontaneous
  Country: US (occurrence: None)
  Receive Date: 20210629
  Receipt Date: 20240510
  Transmission Date: 20240716
  Serious: Yes (Hospitalization, Other)
  Sender: FDA-Public Use
  Company Number: US-FARMAPROD-202106-0956

PATIENT
  Age: 42 Year
  Sex: Female

DRUGS (19)
  1. OXERVATE [Suspect]
     Active Substance: CENEGERMIN-BKBJ
     Indication: Neurotrophic keratopathy
     Route: 047
     Dates: start: 20210325, end: 20210519
  2. OXERVATE [Suspect]
     Active Substance: CENEGERMIN-BKBJ
     Route: 047
     Dates: start: 20210525, end: 20210720
  3. OXERVATE [Suspect]
     Active Substance: CENEGERMIN-BKBJ
     Route: 047
     Dates: start: 20210721, end: 20210915
  4. OXERVATE [Suspect]
     Active Substance: CENEGERMIN-BKBJ
     Route: 047
     Dates: start: 20210916, end: 20211115
  5. OXERVATE [Suspect]
     Active Substance: CENEGERMIN-BKBJ
     Dosage: 3 TIMES DAILY FROM 02/MAY/2023 TO 11/MAY/2023
     Route: 047
     Dates: start: 20230427, end: 20230511
  6. OXERVATE [Suspect]
     Active Substance: CENEGERMIN-BKBJ
     Route: 047
     Dates: start: 20230911, end: 20231210
  7. OXERVATE [Suspect]
     Active Substance: CENEGERMIN-BKBJ
     Route: 047
     Dates: start: 20231211, end: 20240208
  8. OXERVATE [Suspect]
     Active Substance: CENEGERMIN-BKBJ
     Route: 047
     Dates: start: 20240306
  9. VANCOMYCIN HYDROCHLORIDE [Concomitant]
     Active Substance: VANCOMYCIN HYDROCHLORIDE
     Dosage: WITH 0.9% SALINE SOLUTION
  10. DEXAMETHASONE [Concomitant]
     Active Substance: DEXAMETHASONE
  11. TRAZODONE HCL [Concomitant]
     Active Substance: TRAZODONE HYDROCHLORIDE
  12. VALACYCLOVIR [Concomitant]
     Active Substance: VALACYCLOVIR HYDROCHLORIDE
     Route: 048
     Dates: start: 2020
  13. ATIVAN [Concomitant]
     Active Substance: LORAZEPAM
  14. GABAPENTIN [Concomitant]
     Active Substance: GABAPENTIN
  15. DIFLUPREDNATE [Concomitant]
     Active Substance: DIFLUPREDNATE
     Dates: start: 20220922
  16. MOXIFLOXACIN [Concomitant]
     Active Substance: MOXIFLOXACIN
     Dates: start: 20220922
  17. BETADINE [Concomitant]
     Active Substance: POVIDONE-IODINE
     Dates: start: 202212
  18. PRESERVATIVE FREE TEARS [Concomitant]
  19. BESIVANCE [Concomitant]
     Active Substance: BESIFLOXACIN

REACTIONS (12)
  - Illness [Unknown]
  - Depression [Unknown]
  - Off label use [Not Recovered/Not Resolved]
  - Herpes ophthalmic [Unknown]
  - Eye pain [Not Recovered/Not Resolved]
  - Product storage error [Not Recovered/Not Resolved]
  - Condition aggravated [Unknown]
  - Product dose omission issue [Unknown]
  - Foreign body sensation in eyes [Unknown]
  - Treatment noncompliance [Not Recovered/Not Resolved]
  - Hordeolum [Unknown]
  - Intentional product misuse [Unknown]

NARRATIVE: CASE EVENT DATE: 20210616
